FAERS Safety Report 5349419-5 (Version None)
Quarter: 2007Q2

REPORT INFORMATION
  Report Type: 
  Country: None (occurrence: None)
  Receive Date: 20070607
  Receipt Date: 20070530
  Transmission Date: 20071010
  Serious: Yes (Other)
  Sender: FDA-Public Use
  Company Number: CA-ROCHE-500306

PATIENT
  Age: 68 Year
  Sex: Female

DRUGS (7)
  1. VALGANCICLOVIR HCL [Suspect]
     Indication: CYTOMEGALOVIRUS ENTERITIS
     Route: 065
  2. DIDANOSINE [Interacting]
     Indication: HIV INFECTION
     Route: 065
  3. LAMIVUDINE AND ZIDOVUDINE [Concomitant]
     Indication: HIV INFECTION
     Dosage: REPORTED AS ZIDOVUDINE/LAMIVUDINE 300/150 MG
  4. LOPINAVIR/RITONAVIR [Concomitant]
     Indication: HIV INFECTION
     Dosage: REPORTED AS LOPINAVIR/RITONAVIR 400/100 MG
  5. SULFAMETHOXAZOLE AND TRIMETHOPRIM [Concomitant]
     Indication: PROPHYLAXIS
     Dosage: REPORTED AS TRIMETHOPRIM/SULFAMETHOXAZOLE 800/160 MG
  6. DAPSONE [Concomitant]
     Indication: PROPHYLAXIS
  7. ABACAVIR [Concomitant]
     Indication: HIV INFECTION

REACTIONS (2)
  - CD4 LYMPHOCYTES DECREASED [None]
  - DRUG INTERACTION [None]
